FAERS Safety Report 25522267 (Version 1)
Quarter: 2025Q3

REPORT INFORMATION
  Report Type: Spontaneous
  Country: US (occurrence: US)
  Receive Date: 20250707
  Receipt Date: 20250707
  Transmission Date: 20251020
  Serious: No
  Sender: PHARMACOSMOS A/S
  Company Number: US-NEBO-699871

PATIENT
  Age: 82 Year
  Sex: Female

DRUGS (3)
  1. COSELA [Suspect]
     Active Substance: TRILACICLIB DIHYDROCHLORIDE
     Indication: Myelosuppression
     Dates: start: 20250428, end: 20250610
  2. TOPOTECAN [Concomitant]
     Active Substance: TOPOTECAN HYDROCHLORIDE
     Dates: start: 20250428, end: 20250610
  3. GRANISETRON [Concomitant]
     Active Substance: GRANISETRON

REACTIONS (1)
  - Cough [Unknown]
